FAERS Safety Report 5644380-8 (Version None)
Quarter: 2008Q1

REPORT INFORMATION
  Report Type: 
  Country: None (occurrence: None)
  Receive Date: 20080229
  Receipt Date: 20080228
  Transmission Date: 20080703
  Serious: Yes (Death, Hospitalization)
  Sender: FDA-Public Use
  Company Number: PE-BRISTOL-MYERS SQUIBB COMPANY-13512512

PATIENT
  Age: 69 Year
  Sex: Female

DRUGS (7)
  1. CISPLATIN [Suspect]
     Indication: GASTRIC CANCER
     Route: 041
     Dates: start: 20060824, end: 20060824
  2. TS-1 [Suspect]
     Indication: GASTRIC CANCER
     Dosage: PROTOCOL: DAILY FOR 21 DAYS EVERY 28 DAYS
     Route: 048
     Dates: start: 20060824, end: 20060908
  3. DEXTROSE [Concomitant]
     Indication: FLUID REPLACEMENT
     Route: 042
     Dates: start: 20060907, end: 20060907
  4. POTASSIUM CHLORIDE [Concomitant]
     Indication: FLUID REPLACEMENT
     Dosage: 20% SOLUTION, 20 ML/DAY
     Route: 042
     Dates: start: 20060907, end: 20060907
  5. MAGNESIUM SULFATE [Concomitant]
     Indication: HYPOMAGNESAEMIA
     Route: 042
     Dates: start: 20060907, end: 20060907
  6. FILGRASTIM [Concomitant]
     Indication: NEUTROPENIA
     Route: 058
     Dates: start: 20060907, end: 20060907
  7. SODIUM CHLORIDE INJ [Concomitant]
     Indication: FLUID REPLACEMENT
     Dosage: ALSO ON 31AUG06.
     Route: 042
     Dates: start: 20060907, end: 20060907

REACTIONS (4)
  - DEHYDRATION [None]
  - DIARRHOEA [None]
  - NEUTROPENIC SEPSIS [None]
  - SEPTIC SHOCK [None]
